FAERS Safety Report 19655069 (Version 1)
Quarter: 2021Q3

REPORT INFORMATION
  Report Type: Spontaneous
  Country: CA (occurrence: CA)
  Receive Date: 20210804
  Receipt Date: 20210804
  Transmission Date: 20211014
  Serious: Yes (Hospitalization, Other)
  Sender: FDA-Public Use
  Company Number: CA-ORGANON-O2108CAN000001

PATIENT
  Age: 5 Year
  Sex: Female

DRUGS (11)
  1. GABAPENTIN. [Suspect]
     Active Substance: GABAPENTIN
     Indication: PRURITUS
     Dosage: UNK
     Route: 065
  2. HYDROXYZINE [Suspect]
     Active Substance: HYDROXYZINE HYDROCHLORIDE
     Indication: PRURITUS
     Dosage: UNK
     Route: 065
  3. CLONIDINE. [Suspect]
     Active Substance: CLONIDINE
     Indication: PRURITUS
     Dosage: UNK
     Route: 065
  4. DESLORATADINE. [Suspect]
     Active Substance: DESLORATADINE
     Indication: PRURITUS
     Dosage: 2.5 MG
     Route: 065
  5. VANCOMYCIN [Suspect]
     Active Substance: VANCOMYCIN
     Indication: STAPHYLOCOCCAL BACTERAEMIA
     Dosage: UNK
     Route: 042
  6. MEPOLIZUMAB [Suspect]
     Active Substance: MEPOLIZUMAB
     Indication: PRURITUS
     Dosage: 50 MG
     Route: 058
  7. VANCOMYCIN [Suspect]
     Active Substance: VANCOMYCIN
     Indication: VASCULAR DEVICE INFECTION
  8. MEPOLIZUMAB [Suspect]
     Active Substance: MEPOLIZUMAB
     Indication: EOSINOPHILIA
  9. DIPHENHYDRAMINE. [Suspect]
     Active Substance: DIPHENHYDRAMINE
     Indication: PRURITUS
     Dosage: UNK
     Route: 065
  10. MIRTAZAPINE. [Suspect]
     Active Substance: MIRTAZAPINE
     Indication: PRURITUS
     Dosage: 7.5 MG
     Route: 065
  11. AMITRIPTYLINE [Suspect]
     Active Substance: AMITRIPTYLINE
     Indication: PRURITUS
     Dosage: UNK
     Route: 065

REACTIONS (4)
  - Drug ineffective [Recovered/Resolved]
  - Linear IgA disease [Recovered/Resolved]
  - Off label use [Recovered/Resolved]
  - Pruritus [Recovered/Resolved]
